FAERS Safety Report 14331072 (Version 2)
Quarter: 2017Q4

REPORT INFORMATION
  Report Type: Spontaneous
  Country: US (occurrence: US)
  Receive Date: 20171228
  Receipt Date: 20171228
  Transmission Date: 20180321
  Serious: No
  Sender: FDA-Public Use
  Company Number: US-ABBVIE-17P-163-2084881-00

PATIENT
  Sex: Male
  Weight: 97.5 kg

DRUGS (2)
  1. LUPRON DEPOT [Suspect]
     Active Substance: LEUPROLIDE ACETATE
     Indication: PROSTATE CANCER
     Route: 050
  2. FIRMAGON [Suspect]
     Active Substance: DEGARELIX ACETATE
     Indication: PROSTATE CANCER
     Dosage: LOADING DOSE 240 MG, THEN TWO FOLLOW UP MAINTENANCE DOSES AT 80 MG SEPARATED BY 28 DAYS
     Route: 050
     Dates: start: 201704, end: 20170712

REACTIONS (4)
  - Hot flush [Unknown]
  - Headache [Unknown]
  - Dizziness [Unknown]
  - White blood cell count increased [Recovered/Resolved]
